FAERS Safety Report 6366886-9 (Version None)
Quarter: 2009Q3

REPORT INFORMATION
  Report Type: 
  Country: None (occurrence: None)
  Receive Date: 20090921
  Receipt Date: 20090916
  Transmission Date: 20100115
  Serious: No
  Sender: FDA-Public Use
  Company Number: US-ROXANE LABORATORIES, INC.-2009-RO-00965RO

PATIENT

DRUGS (1)
  1. LITHIUM CARBONATE [Suspect]

REACTIONS (1)
  - RENAL FAILURE [None]
